FAERS Safety Report 5036363-6 (Version None)
Quarter: 2006Q2

REPORT INFORMATION
  Report Type: 
  Country: None (occurrence: None)
  Receive Date: 20060601
  Receipt Date: 20060421
  Transmission Date: 20061013
  Serious: No
  Sender: FDA-Public Use
  Company Number: US200604003738

PATIENT
  Age: 62 Year
  Sex: Female

DRUGS (3)
  1. CYMBALTA [Suspect]
     Indication: FIBROMYALGIA
     Dosage: 30 MG, EACH MORNING
     Dates: start: 20060415
  2. NEURONTIN [Concomitant]
  3. LORAZEPAM [Concomitant]

REACTIONS (6)
  - APATHY [None]
  - DECREASED APPETITE [None]
  - DIPLOPIA [None]
  - FATIGUE [None]
  - SOMNOLENCE [None]
  - THIRST [None]
